FAERS Safety Report 6582769-3 (Version None)
Quarter: 2010Q1

REPORT INFORMATION
  Report Type: 
  Country: None (occurrence: None)
  Receive Date: 20100216
  Receipt Date: 20100204
  Transmission Date: 20100710
  Serious: Yes (Hospitalization)
  Sender: FDA-Public Use
  Company Number: IT-PFIZER INC-2010016152

PATIENT
  Age: 76 Year
  Sex: Female

DRUGS (6)
  1. ZOLOFT [Suspect]
     Indication: DEPRESSION
     Dosage: 50 MG DAILY
     Route: 048
     Dates: start: 20091214, end: 20100121
  2. BISOPROLOL FUMARATE [Concomitant]
  3. RAMIPRIL [Concomitant]
  4. LASIX [Concomitant]
     Dosage: 50 MG
     Route: 048
  5. PANTOPRAZOLE SODIUM [Concomitant]
     Dosage: 40 MG
     Route: 048
  6. ASPIRIN [Concomitant]

REACTIONS (2)
  - PYREXIA [None]
  - RESPIRATORY FAILURE [None]
